FAERS Safety Report 8256151-7 (Version None)
Quarter: 2012Q2

REPORT INFORMATION
  Report Type: 
  Country: None (occurrence: None)
  Receive Date: 20120403
  Receipt Date: 20120319
  Transmission Date: 20120825
  Serious: Yes (Other)
  Sender: FDA-Public Use
  Company Number: US-ROCHE-662233

PATIENT
  Age: 40 Year
  Sex: Male

DRUGS (1)
  1. VALIUM [Suspect]
     Indication: PRODUCT USED FOR UNKNOWN INDICATION
     Route: 050

REACTIONS (5)
  - IMPAIRED WORK ABILITY [None]
  - UNEVALUABLE EVENT [None]
  - DISABILITY [None]
  - OVERDOSE [None]
  - CONFUSIONAL STATE [None]
